FAERS Safety Report 5119862-8 (Version None)
Quarter: 2006Q4

REPORT INFORMATION
  Report Type: 
  Country: None (occurrence: None)
  Receive Date: 20061003
  Receipt Date: 20060919
  Transmission Date: 20070319
  Serious: Yes (Hospitalization)
  Sender: FDA-Public Use
  Company Number: CA-BOEHRINGER INGELHEIM PHARMACEUTICALS, INC.-2006-CN-00492CN

PATIENT
  Sex: Male

DRUGS (1)
  1. TIPRANAVIR + RITONAVIR CO-ADMIN [Suspect]

REACTIONS (2)
  - CELLULITIS [None]
  - FEBRILE NEUTROPENIA [None]
